FAERS Safety Report 14327552 (Version 4)
Quarter: 2018Q1

REPORT INFORMATION
  Report Type: Spontaneous
  Country: FR (occurrence: FR)
  Receive Date: 20171227
  Receipt Date: 20180323
  Transmission Date: 20180509
  Serious: Yes (Hospitalization, Other)
  Sender: FDA-Public Use
  Company Number: FR-PFIZER INC-2012073603

PATIENT
  Age: 1 Day
  Sex: Female
  Weight: 4.16 kg

DRUGS (14)
  1. IMOVANE [Suspect]
     Active Substance: ZOPICLONE
     Indication: OBSESSIVE-COMPULSIVE DISORDER
     Dosage: UNK
     Route: 064
  2. IMOVANE [Suspect]
     Active Substance: ZOPICLONE
     Indication: ANXIETY
  3. ZYPREXA [Suspect]
     Active Substance: OLANZAPINE
     Dosage: 5 MG, 1X/DAY
     Route: 064
     Dates: start: 2009, end: 20101218
  4. ZOLOFT [Suspect]
     Active Substance: SERTRALINE HYDROCHLORIDE
     Indication: OBSESSIVE-COMPULSIVE DISORDER
     Dosage: 50 MG, 1X/DAY
     Route: 064
     Dates: start: 2006, end: 20100918
  5. SERESTA [Suspect]
     Active Substance: OXAZEPAM
     Indication: OBSESSIVE-COMPULSIVE DISORDER
     Dosage: 85 MG DAILY
     Route: 064
  6. LARGACTIL [Suspect]
     Active Substance: CHLORPROMAZINE
     Indication: OBSESSIVE-COMPULSIVE DISORDER
     Dosage: 62.5 MG, DAILY
     Route: 064
  7. LARGACTIL [Suspect]
     Active Substance: CHLORPROMAZINE
     Indication: ANXIETY
  8. ABILIFY [Suspect]
     Active Substance: ARIPIPRAZOLE
     Dosage: 5 MG, 1X/DAY
     Route: 064
     Dates: start: 20101218, end: 20110301
  9. TERCIAN [Suspect]
     Active Substance: CYAMEMAZINE
     Indication: OBSESSIVE-COMPULSIVE DISORDER
     Dosage: UNK
     Route: 064
  10. TERCIAN [Suspect]
     Active Substance: CYAMEMAZINE
     Indication: ANXIETY
  11. ZOLOFT [Suspect]
     Active Substance: SERTRALINE HYDROCHLORIDE
     Indication: ANXIETY
  12. LAROXYL [Suspect]
     Active Substance: AMITRIPTYLINE HYDROCHLORIDE
     Indication: OBSESSIVE-COMPULSIVE DISORDER
     Dosage: 75 MG, DAILY
     Route: 064
  13. LAROXYL [Suspect]
     Active Substance: AMITRIPTYLINE HYDROCHLORIDE
     Indication: ANXIETY
  14. SERESTA [Suspect]
     Active Substance: OXAZEPAM
     Indication: ANXIETY

REACTIONS (5)
  - Infantile vomiting [Recovered/Resolved]
  - Neonatal respiratory distress [Recovered/Resolved]
  - Hypotonia neonatal [Recovered/Resolved]
  - Poor feeding infant [Recovered/Resolved]
  - Maternal exposure timing unspecified [Recovered/Resolved]

NARRATIVE: CASE EVENT DATE: 20100807
